FAERS Safety Report 8960811 (Version 1)
Quarter: 2012Q4

REPORT INFORMATION
  Report Type: 
  Country: NL (occurrence: NL)
  Receive Date: 20121212
  Receipt Date: 20121212
  Transmission Date: 20130627
  Serious: Yes (Hospitalization)
  Sender: FDA-Public Use
  Company Number: NL-PFIZER INC-2012309255

PATIENT
  Age: 53 Year
  Sex: Male
  Weight: 54 kg

DRUGS (4)
  1. GENOTROPIN [Suspect]
     Dosage: 0.5 mg, 1x/day, 7 Injections/week
     Route: 058
     Dates: start: 20050410
  2. ASCAL [Concomitant]
     Indication: PROPHYLAXIS
     Dosage: UNK
     Dates: start: 19991111
  3. ELTROXIN [Concomitant]
     Indication: TSH DECREASED
     Dosage: UNK
     Dates: start: 2000
  4. NEXIUM [Concomitant]
     Indication: PROPHYLAXIS
     Dosage: UNK
     Dates: start: 20040418

REACTIONS (1)
  - Musculoskeletal discomfort [Unknown]
